FAERS Safety Report 10347381 (Version 5)
Quarter: 2015Q1

REPORT INFORMATION
  Report Type: Report from Study
  Country: BR (occurrence: BR)
  Receive Date: 20140729
  Receipt Date: 20150302
  Transmission Date: 20150720
  Serious: Yes (Other)
  Sender: FDA-Public Use
  Company Number: PHHY2014BR092494

PATIENT
  Age: 71 Year
  Sex: Male
  Weight: 79 kg

DRUGS (15)
  1. SIMVASTATIN. [Suspect]
     Active Substance: SIMVASTATIN
     Indication: CARDIAC DISORDER
     Dosage: 40 MG (2 TABLETS), QD
     Route: 065
  2. NATRILIX - SLOW RELEASE [Suspect]
     Active Substance: INDAPAMIDE
     Indication: HYPERTENSION
     Dosage: 1 DF, QD
     Route: 065
  3. OMEPRAZOL [Suspect]
     Active Substance: OMEPRAZOLE
     Indication: DYSPEPSIA
     Dosage: 1 DF, QD
     Route: 065
  4. SPIRONOLACTONE. [Suspect]
     Active Substance: SPIRONOLACTONE
     Dosage: 50 MG (1 TABLET), DAILY
  5. PHENYTOIN. [Concomitant]
     Active Substance: PHENYTOIN
     Indication: SURGERY
     Dosage: 2 DF, QD
     Route: 065
     Dates: start: 20140210
  6. ZANIDIP [Suspect]
     Active Substance: LERCANIDIPINE HYDROCHLORIDE
     Indication: HYPERTENSION
     Route: 065
  7. SPIRONOLACTONE. [Suspect]
     Active Substance: SPIRONOLACTONE
     Indication: HYPERTENSION
     Dosage: 40 MG (2 TABLETS), DAILY
  8. METFORMIN [Suspect]
     Active Substance: METFORMIN HYDROCHLORIDE
     Indication: DIABETES MELLITUS
     Dosage: 3 DF, QD
     Route: 048
  9. GALVUS MET [Suspect]
     Active Substance: METFORMIN HYDROCHLORIDE\VILDAGLIPTIN
     Dosage: 1 DF (1000/50 MG), QD
     Route: 048
     Dates: start: 201501
  10. DIOVAN [Suspect]
     Active Substance: VALSARTAN
     Indication: HYPERTENSION
     Dosage: 1 DF, QD
     Route: 048
  11. APRESOLIN [Suspect]
     Active Substance: HYDRALAZINE HYDROCHLORIDE
     Indication: HYPERTENSION
     Dosage: 3 DF, QD
     Route: 065
  12. SIMVASTATIN. [Suspect]
     Active Substance: SIMVASTATIN
     Dosage: 40 MG (1 TABLET), DAILY
  13. AMIODARONE [Suspect]
     Active Substance: AMIODARONE
     Indication: PRODUCT USED FOR UNKNOWN INDICATION
     Dosage: 200 MG (1 TABLET), QOD
     Route: 065
  14. GALVUS MET [Suspect]
     Active Substance: METFORMIN HYDROCHLORIDE\VILDAGLIPTIN
     Indication: DIABETES MELLITUS
     Dosage: 2 DF (850/50 MG), QD
     Route: 065
     Dates: end: 201501
  15. APRESOLIN [Suspect]
     Active Substance: HYDRALAZINE HYDROCHLORIDE
     Indication: CARDIAC DISORDER

REACTIONS (15)
  - Visual impairment [Unknown]
  - Labyrinthitis [Unknown]
  - Eye disorder [Recovering/Resolving]
  - Eye discharge [Recovering/Resolving]
  - Thyroid disorder [Unknown]
  - Eye irritation [Recovering/Resolving]
  - Ocular hyperaemia [Unknown]
  - Memory impairment [Unknown]
  - Tinnitus [Unknown]
  - Eye pruritus [Recovering/Resolving]
  - Feeling abnormal [Unknown]
  - Cataract [Recovering/Resolving]
  - Thyroid neoplasm [Recovering/Resolving]
  - Nephrolithiasis [Recovering/Resolving]
  - Incorrect dose administered [Unknown]

NARRATIVE: CASE EVENT DATE: 2014
